FAERS Safety Report 19141695 (Version 39)
Quarter: 2025Q1

REPORT INFORMATION
  Report Type: Spontaneous
  Country: US (occurrence: US)
  Receive Date: 20210415
  Receipt Date: 20250306
  Transmission Date: 20250408
  Serious: Yes (Disabling, Other)
  Sender: PFIZER
  Company Number: US-PFIZER INC-2021382122

PATIENT
  Age: 57 Year
  Sex: Female

DRUGS (16)
  1. XELJANZ [Suspect]
     Active Substance: TOFACITINIB CITRATE
     Indication: Rheumatoid arthritis
     Dosage: 5 MG, 2X/DAY
     Route: 048
     Dates: start: 20210325, end: 20220325
  2. XELJANZ [Suspect]
     Active Substance: TOFACITINIB CITRATE
     Dosage: 5 MG, 2X/DAY
     Route: 048
  3. XELJANZ [Suspect]
     Active Substance: TOFACITINIB CITRATE
     Dosage: 5 MG, 1X/DAY
     Route: 048
  4. XELJANZ [Suspect]
     Active Substance: TOFACITINIB CITRATE
     Dosage: 10 MG, 2X/DAY (TAKE 2 TABLETS (10 MG) BY MOUTH 2 (TWO) TIMES A DAY)
     Route: 048
  5. XELJANZ [Suspect]
     Active Substance: TOFACITINIB CITRATE
  6. FOSAMAX [Concomitant]
     Active Substance: ALENDRONATE SODIUM
  7. LEVOTHYROXINE [Concomitant]
     Active Substance: LEVOTHYROXINE
  8. IRBESARTAN [Concomitant]
     Active Substance: IRBESARTAN
  9. TRAZODONE [Concomitant]
     Active Substance: TRAZODONE HYDROCHLORIDE
  10. FIORICET [Concomitant]
     Active Substance: ACETAMINOPHEN\BUTALBITAL\CAFFEINE
  11. BACLOFEN [Concomitant]
     Active Substance: BACLOFEN
  12. GABAPENTIN [Concomitant]
     Active Substance: GABAPENTIN
  13. PREDNISONE [Concomitant]
     Active Substance: PREDNISONE
  14. HYDROXYCHLOROQUINE [Concomitant]
     Active Substance: HYDROXYCHLOROQUINE
  15. ZYRTEC [Concomitant]
     Active Substance: CETIRIZINE HYDROCHLORIDE
  16. VITAMIN B12 [Concomitant]
     Active Substance: CYANOCOBALAMIN

REACTIONS (45)
  - Acute kidney injury [Not Recovered/Not Resolved]
  - Hip fracture [Unknown]
  - Mental impairment [Unknown]
  - Chest injury [Unknown]
  - Joint swelling [Not Recovered/Not Resolved]
  - Joint lock [Unknown]
  - Rib fracture [Unknown]
  - Bronchitis [Unknown]
  - Shoulder operation [Unknown]
  - Knee arthroplasty [Not Recovered/Not Resolved]
  - Foot fracture [Unknown]
  - Pneumonia [Not Recovered/Not Resolved]
  - Lower respiratory tract infection [Not Recovered/Not Resolved]
  - Gait disturbance [Recovering/Resolving]
  - Neuropathy peripheral [Unknown]
  - Immunodeficiency [Unknown]
  - Product prescribing error [Unknown]
  - Product dispensing error [Unknown]
  - Incorrect dose administered [Unknown]
  - Bone disorder [Unknown]
  - Pain [Unknown]
  - Sinusitis [Unknown]
  - Back disorder [Unknown]
  - Musculoskeletal stiffness [Unknown]
  - Peripheral swelling [Unknown]
  - Swelling [Unknown]
  - Infection [Unknown]
  - Inappropriate schedule of product administration [Unknown]
  - COVID-19 [Unknown]
  - Fatigue [Unknown]
  - Burning sensation [Unknown]
  - Hypoaesthesia [Unknown]
  - Pain in extremity [Not Recovered/Not Resolved]
  - Muscle swelling [Unknown]
  - Dyspnoea [Unknown]
  - Cough [Unknown]
  - Pyrexia [Recovered/Resolved]
  - Malaise [Unknown]
  - Memory impairment [Not Recovered/Not Resolved]
  - Stress [Not Recovered/Not Resolved]
  - Condition aggravated [Not Recovered/Not Resolved]
  - Anxiety [Unknown]
  - Upper respiratory tract infection [Unknown]
  - Decreased appetite [Unknown]
  - Cardiac disorder [Unknown]

NARRATIVE: CASE EVENT DATE: 20210101
